FAERS Safety Report 23742505 (Version 2)
Quarter: 2024Q2

REPORT INFORMATION
  Report Type: Spontaneous
  Country: AR (occurrence: AR)
  Receive Date: 20240415
  Receipt Date: 20240520
  Transmission Date: 20240716
  Serious: Yes (Other)
  Sender: FDA-Public Use
  Company Number: AR-MYLANLABS-2024M1031589

PATIENT
  Age: 69 Year
  Sex: Female

DRUGS (1)
  1. CLOZAPINE [Suspect]
     Active Substance: CLOZAPINE
     Indication: Product used for unknown indication
     Dosage: UNK
     Route: 065
     Dates: start: 20220105

REACTIONS (4)
  - Neutropenia [Recovering/Resolving]
  - Leukopenia [Recovered/Resolved]
  - Dengue fever [Unknown]
  - Therapy cessation [Unknown]

NARRATIVE: CASE EVENT DATE: 20240404
